FAERS Safety Report 21511599 (Version 1)
Quarter: 2022Q4

REPORT INFORMATION
  Report Type: Spontaneous
  Country: US (occurrence: US)
  Receive Date: 20221027
  Receipt Date: 20221027
  Transmission Date: 20230113
  Serious: Yes (Life-Threatening, Hospitalization, Other)
  Sender: FDA-Public Use
  Company Number: US-MLMSERVICE-20221010-3848781-1

PATIENT
  Age: 26 Year
  Sex: Male

DRUGS (2)
  1. LOPERAMIDE [Suspect]
     Active Substance: LOPERAMIDE
     Indication: Product used for unknown indication
     Dosage: 50 DOSAGE FORM, ONCE A DAY(50-100 TABLETS)
     Route: 065
  2. LOPERAMIDE [Suspect]
     Active Substance: LOPERAMIDE
     Dosage: 100 DOSAGE FORM, ONCE A DAY (50-100 TABLETS)
     Route: 065

REACTIONS (9)
  - Electrocardiogram QT prolonged [Recovering/Resolving]
  - Stress cardiomyopathy [Recovered/Resolved]
  - Ejection fraction decreased [Recovering/Resolving]
  - Drug abuse [Recovering/Resolving]
  - Ventricular fibrillation [Recovering/Resolving]
  - Torsade de pointes [Recovering/Resolving]
  - Ventricular tachycardia [Recovering/Resolving]
  - Nodal arrhythmia [Recovering/Resolving]
  - Atrioventricular block [Recovering/Resolving]
